FAERS Safety Report 17225246 (Version 2)
Quarter: 2020Q1

REPORT INFORMATION
  Report Type: Spontaneous
  Country: FR (occurrence: FR)
  Receive Date: 20200102
  Receipt Date: 20200203
  Transmission Date: 20200409
  Serious: Yes (Death, Hospitalization)
  Sender: FDA-Public Use
  Company Number: FR-PFIZER INC-2019562996

PATIENT
  Age: 77 Year
  Sex: Female
  Weight: 64 kg

DRUGS (8)
  1. FUROSEMIDE. [Concomitant]
     Active Substance: FUROSEMIDE
     Dosage: 125 MG, DAILY
  2. XARELTO [Concomitant]
     Active Substance: RIVAROXABAN
     Dosage: 20 MG, DAILY
  3. PANTOPRAZOLE [Concomitant]
     Active Substance: PANTOPRAZOLE
     Dosage: 20 MG, DAILY
  4. CORDARONE [Concomitant]
     Active Substance: AMIODARONE HYDROCHLORIDE
     Dosage: 200 MG, DAILY
  5. LEVOTHYROX [Concomitant]
     Active Substance: LEVOTHYROXINE
     Dosage: 75 UG, DAILY
  6. BISOCE [Suspect]
     Active Substance: BISOPROLOL
     Indication: ATRIAL FIBRILLATION
     Dosage: 2.5 MG, 1X/DAY
     Route: 048
     Dates: start: 20191213, end: 20191215
  7. VYNDAQEL [Suspect]
     Active Substance: TAFAMIDIS MEGLUMINE
     Indication: CARDIAC AMYLOIDOSIS
     Dosage: 20 MG, 1X/DAY
     Route: 048
     Dates: start: 20191008, end: 20191209
  8. ALDACTONE [Concomitant]
     Active Substance: SPIRONOLACTONE
     Dosage: 25 MG,DAILY

REACTIONS (3)
  - Cardiac failure [Fatal]
  - Cardiogenic shock [Fatal]
  - Abdominal pain [Unknown]

NARRATIVE: CASE EVENT DATE: 20191215
